FAERS Safety Report 7659660-4 (Version None)
Quarter: 2011Q3

REPORT INFORMATION
  Report Type: 
  Country: None (occurrence: None)
  Receive Date: 20110805
  Receipt Date: 20110728
  Transmission Date: 20111222
  Serious: Yes (Death, Hospitalization, Other)
  Sender: FDA-Public Use
  Company Number: US-BAYER-201012130NA

PATIENT
  Age: 64 Year
  Sex: Male
  Weight: 96 kg

DRUGS (24)
  1. TRASYLOL [Suspect]
     Dosage: 200 ML
     Route: 042
     Dates: start: 19990101, end: 19990406
  2. ACETYLSALICYLIC ACID SRT [Concomitant]
     Dosage: 325 MG, QD
  3. NITROGLYCERIN [Concomitant]
     Dosage: 0.4 MG, PRN
  4. HEPARIN [Concomitant]
     Dosage: UNK
     Dates: start: 19990404
  5. TRASYLOL [Suspect]
     Dosage: 50 ML/HOUR INFUSION
     Route: 042
     Dates: start: 19990101, end: 19990406
  6. COUMADIN [Concomitant]
     Dosage: 10 MG, THRUSDAY
  7. LIPITOR [Concomitant]
     Dosage: 20 MG, BID
  8. LOPRESSOR [Concomitant]
     Dosage: 12.5 MG, BID
  9. EPINEPHRINE [Concomitant]
     Dosage: UNK
     Dates: start: 19990404
  10. RED BLOOD CELLS [Concomitant]
     Dosage: 4 U, UNK
     Route: 042
     Dates: start: 19990404
  11. MANNITOL [Concomitant]
     Dosage: UNK
     Dates: start: 19990404
  12. TRASYLOL [Suspect]
     Indication: HEART TRANSPLANT
     Dosage: 50 CC/HR
     Route: 042
     Dates: start: 19990404, end: 19990405
  13. LANOXIN [Concomitant]
     Dosage: 0.125 MG, QD
  14. COUMADIN [Concomitant]
     Dosage: 0.5 MG, QD
  15. LASIX [Concomitant]
     Dosage: UNK
     Dates: start: 19990404
  16. MILRINONE [Concomitant]
     Dosage: UNK
     Dates: start: 19990404
  17. CLONIDINE [Concomitant]
     Dosage: 0.2 MG, QD
  18. NORVASC [Concomitant]
     Dosage: 2.5 MG, QD
  19. FRESH FROZEN PLASMA [Concomitant]
     Dosage: 4 U, UNK
     Route: 042
     Dates: start: 19990404
  20. PLATELETS [Concomitant]
     Dosage: 10 U, UNK
     Route: 042
     Dates: start: 19990404
  21. AMICAR [Concomitant]
     Dosage: 1 GRAM/HR X 5 HOURS
     Dates: start: 19990404
  22. EFFEXOR [Concomitant]
     Dosage: 37.5 MG, BID
  23. ALLOPURINOL [Concomitant]
     Dosage: 100 MG, QD
  24. DOPAMINE HCL [Concomitant]
     Dosage: UNK
     Dates: start: 19990404

REACTIONS (14)
  - RENAL IMPAIRMENT [None]
  - CEREBROVASCULAR ACCIDENT [None]
  - EMOTIONAL DISTRESS [None]
  - ANXIETY [None]
  - PAIN [None]
  - DEATH [None]
  - UNEVALUABLE EVENT [None]
  - FEAR [None]
  - ANHEDONIA [None]
  - RENAL FAILURE [None]
  - STRESS [None]
  - MULTI-ORGAN FAILURE [None]
  - RENAL INJURY [None]
  - INJURY [None]
